FAERS Safety Report 8550036-4 (Version None)
Quarter: 2012Q3

REPORT INFORMATION
  Report Type: 
  Country: None (occurrence: None)
  Receive Date: 20120720
  Receipt Date: 20120720
  Transmission Date: 20120928
  Serious: Yes (Hospitalization)
  Sender: FDA-Public Use
  Company Number: None

PATIENT
  Sex: Male
  Weight: 109 kg

DRUGS (2)
  1. CISPLATIN [Suspect]
     Dosage: 59 MG
     Dates: end: 20120711
  2. PACLITAXEL [Suspect]
     Dosage: 118.5 MG
     Dates: end: 20120711

REACTIONS (2)
  - NAUSEA [None]
  - VOMITING [None]
